FAERS Safety Report 12469091 (Version 2)
Quarter: 2016Q2

REPORT INFORMATION
  Report Type: Spontaneous
  Country: JP (occurrence: JP)
  Receive Date: 20160615
  Receipt Date: 20160628
  Transmission Date: 20160815
  Serious: Yes (Hospitalization)
  Sender: FDA-Public Use
  Company Number: JP-PFIZER INC-2016273316

PATIENT
  Age: 21 Year
  Sex: Male
  Weight: 63 kg

DRUGS (8)
  1. NEXIUM [Concomitant]
     Active Substance: ESOMEPRAZOLE MAGNESIUM
     Dosage: UNK
     Dates: start: 20160220, end: 20160302
  2. SEFMAZON [Concomitant]
     Active Substance: CEFAZOLIN
     Dosage: 1 G
     Dates: start: 20160219, end: 20160220
  3. VOLTAREN [Concomitant]
     Active Substance: DICLOFENAC SODIUM
     Dosage: UNK
     Dates: start: 20160219, end: 20160219
  4. CEFCAPENE [Concomitant]
     Active Substance: CEFCAPENE
     Dosage: UNK
     Dates: start: 20160229, end: 20160302
  5. CELECOX [Suspect]
     Active Substance: CELECOXIB
     Dosage: 100 MG, 2X/DAY
     Route: 048
     Dates: start: 20160227, end: 20160302
  6. DROLEPTAN [Concomitant]
     Active Substance: DROPERIDOL
     Dosage: UNK
     Dates: start: 20160219, end: 20160220
  7. FENTANYL. [Concomitant]
     Active Substance: FENTANYL
     Dosage: UNK
     Dates: start: 20160219, end: 20160220
  8. CELECOX [Suspect]
     Active Substance: CELECOXIB
     Indication: LIGAMENT RUPTURE
     Dosage: 200 MG, 2X/DAY
     Route: 048
     Dates: start: 20160220, end: 20160226

REACTIONS (2)
  - Inflammation [Recovering/Resolving]
  - Pyrexia [Recovering/Resolving]

NARRATIVE: CASE EVENT DATE: 20160227
